FAERS Safety Report 6492704-4 (Version None)
Quarter: 2009Q4

REPORT INFORMATION
  Report Type: 
  Country: None (occurrence: None)
  Receive Date: 20091209
  Receipt Date: 20091128
  Transmission Date: 20100525
  Serious: Yes (Other)
  Sender: FDA-Public Use
  Company Number: 233153J08USA

PATIENT
  Age: 56 Year
  Sex: Male
  Weight: 123 kg

DRUGS (6)
  1. REBIF [Suspect]
     Indication: MULTIPLE SCLEROSIS
     Dosage: 44 MCG, 3 IN 1 WEEKS, SUBCUTANEOUS
     Route: 058
     Dates: start: 20021106
  2. OMEPRAZOLE [Concomitant]
  3. DILTIAZEM XR (DILTIAZEM /00489701/) [Concomitant]
  4. TIZANIDINE HCL [Concomitant]
  5. DOXAZOSIN (DOXAZOSIN /00639301/) [Concomitant]
  6. COUMADIN [Concomitant]

REACTIONS (8)
  - ANGER [None]
  - CONFUSIONAL STATE [None]
  - DEMENTIA ALZHEIMER'S TYPE [None]
  - FRUSTRATION [None]
  - PERSONALITY CHANGE [None]
  - TRANSIENT ISCHAEMIC ATTACK [None]
  - VASCULAR DEMENTIA [None]
  - VERBAL ABUSE [None]
